FAERS Safety Report 6528823-3 (Version None)
Quarter: 2009Q4

REPORT INFORMATION
  Report Type: 
  Country: None (occurrence: None)
  Receive Date: 20091223
  Receipt Date: 20091215
  Transmission Date: 20100525
  Serious: Yes (Death)
  Sender: FDA-Public Use
  Company Number: A-CH2009-31143

PATIENT
  Age: 28 Year
  Sex: Male

DRUGS (8)
  1. TRACLEER [Suspect]
     Indication: PULMONARY HYPERTENSION
     Dosage: 62.5 MG, BID, ORAL
     Route: 048
     Dates: start: 20090608, end: 20090616
  2. ALDACTONE [Concomitant]
  3. URSODIOL [Concomitant]
  4. MUCOSTA (REBAMIPIDE) [Concomitant]
  5. LEGALON (SILYBUM MARIANUM) [Concomitant]
  6. METOCLOPRAMIDE (METOCLOPRAMIDE HYDROCHLORIDE) [Concomitant]
  7. LASIX [Concomitant]
  8. WARFARIN SODIUM [Concomitant]

REACTIONS (4)
  - ASTHENIA [None]
  - CONFUSIONAL STATE [None]
  - HEPATIC FAILURE [None]
  - RIGHT VENTRICULAR FAILURE [None]
